FAERS Safety Report 20542919 (Version 1)
Quarter: 2022Q1

REPORT INFORMATION
  Report Type: Spontaneous
  Country: US (occurrence: US)
  Receive Date: 20220302
  Receipt Date: 20220302
  Transmission Date: 20220423
  Serious: No
  Sender: FDA-Public Use
  Company Number: US-PERRIGO-21US004946

PATIENT
  Sex: Female

DRUGS (2)
  1. SCOPOLAMINE [Suspect]
     Active Substance: SCOPOLAMINE
     Indication: Nausea
     Dosage: UNKNOWN, UNKNOWN
     Route: 062
  2. MINIVELLE [Concomitant]
     Active Substance: ESTRADIOL
     Indication: Hysterectomy
     Dosage: UNKNOWN, UNKNOWN
     Route: 062
     Dates: start: 2014

REACTIONS (3)
  - Application site reaction [Unknown]
  - Application site discolouration [Unknown]
  - Product administered at inappropriate site [Recovered/Resolved]
